FAERS Safety Report 9699190 (Version 1)
Quarter: 2013Q4

REPORT INFORMATION
  Report Type: Spontaneous
  Country: US (occurrence: US)
  Receive Date: 20131120
  Receipt Date: 20131120
  Transmission Date: 20140711
  Serious: No
  Sender: FDA-Public Use
  Company Number: US-GILEAD-2008-0014941

PATIENT
  Sex: Female
  Weight: 70.31 kg

DRUGS (11)
  1. LETAIRIS [Suspect]
     Indication: PULMONARY ARTERIAL HYPERTENSION
     Route: 048
     Dates: start: 20071228
  2. LASIX [Concomitant]
     Route: 048
  3. DIOVAN [Concomitant]
     Route: 048
  4. COUMADIN [Concomitant]
     Route: 048
  5. AMARYL [Concomitant]
     Route: 048
  6. DOXEPIN [Concomitant]
     Route: 048
  7. SPIRIVA [Concomitant]
     Route: 055
  8. LORCET [Concomitant]
     Dosage: UD
     Route: 048
  9. CENTRUM SILVER [Concomitant]
     Route: 048
  10. VITAMIN B COMPLEX [Concomitant]
     Route: 048
  11. GLUCOSAMINE [Concomitant]
     Route: 048

REACTIONS (2)
  - Constipation [Unknown]
  - Joint swelling [Unknown]
